FAERS Safety Report 6172859-1 (Version None)
Quarter: 2009Q2

REPORT INFORMATION
  Report Type: 
  Country: None (occurrence: None)
  Receive Date: 20090430
  Receipt Date: 20090421
  Transmission Date: 20091009
  Serious: Yes (Hospitalization)
  Sender: FDA-Public Use
  Company Number: GB-ROCHE-628130

PATIENT
  Sex: Male

DRUGS (4)
  1. CAPECITABINE [Suspect]
     Route: 065
     Dates: start: 20080624, end: 20081021
  2. ERLOTINIB [Suspect]
     Route: 065
     Dates: start: 20080624, end: 20081021
  3. BEVACIZUMAB [Suspect]
     Route: 065
     Dates: start: 20080624, end: 20081021
  4. GEMCITABINE HCL [Suspect]
     Route: 065
     Dates: start: 20080624, end: 20081021

REACTIONS (2)
  - IMPAIRED HEALING [None]
  - INFECTION [None]
